FAERS Safety Report 8162962-9 (Version None)
Quarter: 2012Q1

REPORT INFORMATION
  Report Type: 
  Country: None (occurrence: None)
  Receive Date: 20120224
  Receipt Date: 20120216
  Transmission Date: 20120608
  Serious: Yes (Death, Other)
  Sender: FDA-Public Use
  Company Number: US-BAYER-200940604NA

PATIENT
  Age: 70 Year
  Sex: Male
  Weight: 72.562 kg

DRUGS (14)
  1. TRASYLOL [Suspect]
     Indication: CORONARY ARTERY BYPASS
  2. RED BLOOD CELLS [Concomitant]
     Dosage: 5 U, UNK
  3. BACTRIM [Concomitant]
  4. EPINEPHRINE [Concomitant]
     Dosage: UNK
     Dates: start: 19951201
  5. CIPRO [Concomitant]
     Dosage: UNK
     Dates: start: 19951101
  6. VERAPAMIL [Concomitant]
     Indication: HYPERTENSION
     Dosage: UNK
     Route: 048
     Dates: start: 19951118
  7. PLATELETS [Concomitant]
     Dosage: UNK U, UNK
  8. VANCOMYCIN [Concomitant]
  9. OMNIPAQUE 140 [Concomitant]
     Indication: CATHETERISATION CARDIAC
     Dosage: 86 ML, UNK
     Dates: start: 19951128
  10. DOPAMINE HCL [Concomitant]
  11. TRASYLOL [Suspect]
     Indication: VENTRICULAR SEPTAL DEFECT REPAIR
     Dosage: 50 CC/HR INFUSION
     Route: 042
     Dates: start: 19951128
  12. CRYOPRECIPITATES [Concomitant]
     Dosage: 12 U, UNK
  13. FRESH FROZEN PLASMA [Concomitant]
     Dosage: 4 U, UNK
  14. LEVOPHED [Concomitant]
     Dosage: UNK
     Dates: start: 19951201

REACTIONS (14)
  - RENAL INJURY [None]
  - RENAL FAILURE [None]
  - PSYCHOLOGICAL TRAUMA [None]
  - PAIN [None]
  - MULTI-ORGAN FAILURE [None]
  - RENAL IMPAIRMENT [None]
  - STRESS [None]
  - ANXIETY [None]
  - DEATH [None]
  - ANHEDONIA [None]
  - EMOTIONAL DISTRESS [None]
  - UNEVALUABLE EVENT [None]
  - FEAR [None]
  - INJURY [None]
